FAERS Safety Report 18623002 (Version 1)
Quarter: 2020Q4

REPORT INFORMATION
  Report Type: Report from Study
  Country: US (occurrence: US)
  Receive Date: 20201216
  Receipt Date: 20201216
  Transmission Date: 20210114
  Serious: Yes (Death, Other)
  Sender: FDA-Public Use
  Company Number: US-B.I. PHARMACEUTICALS,INC./RIDGEFIELD-2020-BI-068143

PATIENT
  Age: 68 Year
  Sex: Female

DRUGS (4)
  1. TAGRISSO [Concomitant]
     Active Substance: OSIMERTINIB
     Indication: PRODUCT USED FOR UNKNOWN INDICATION
  2. GRANIX [Concomitant]
     Active Substance: TBO-FILGRASTIM
     Indication: PRODUCT USED FOR UNKNOWN INDICATION
  3. GILOTRIF [Suspect]
     Active Substance: AFATINIB
     Indication: LUNG NEOPLASM MALIGNANT
     Dosage: 30MG BY MOUTH DAILY
     Route: 048
     Dates: start: 20200508
  4. MELATONIN [Concomitant]
     Active Substance: MELATONIN
     Indication: PRODUCT USED FOR UNKNOWN INDICATION

REACTIONS (1)
  - Death [Fatal]

NARRATIVE: CASE EVENT DATE: 20201119
